FAERS Safety Report 15674804 (Version 1)
Quarter: 2018Q4

REPORT INFORMATION
  Report Type: Spontaneous
  Country: US (occurrence: US)
  Receive Date: 20181130
  Receipt Date: 20181130
  Transmission Date: 20190205
  Serious: Yes (Other)
  Sender: FDA-Public Use
  Company Number: US-ACCORD-094092

PATIENT
  Age: 55 Year
  Sex: Male

DRUGS (3)
  1. METHOTREXATE. [Suspect]
     Active Substance: METHOTREXATE
     Indication: BURKITT^S LYMPHOMA
     Dosage: EVERY 21 DAYS
     Route: 037
  2. METHOTREXATE. [Suspect]
     Active Substance: METHOTREXATE
     Indication: BURKITT^S LYMPHOMA
     Dosage: EVERY 21 DAYS (DOSE REDUCED BY 25% FROM CYCLE 3)
     Route: 037
  3. CYTARABINE/CYTARABINE HYDROCHLORIDE/CYTARABINE OCFOSFATE [Suspect]
     Active Substance: CYTARABINE
     Indication: BURKITT^S LYMPHOMA
     Dosage: 2 G/M2 , EVERY 21 DAYS INTRATHECAL
     Route: 042

REACTIONS (4)
  - Renal impairment [Unknown]
  - Drug clearance decreased [Unknown]
  - Cytopenia [Unknown]
  - Delirium [Recovered/Resolved]
